FAERS Safety Report 20878654 (Version 3)
Quarter: 2022Q2

REPORT INFORMATION
  Report Type: Spontaneous
  Country: US (occurrence: US)
  Receive Date: 20220526
  Receipt Date: 20220607
  Transmission Date: 20220721
  Serious: No
  Sender: FDA-Public Use
  Company Number: US-PFIZER INC-202200725687

PATIENT
  Age: 50 Year
  Sex: Female
  Weight: 167.83 kg

DRUGS (16)
  1. VYNDAMAX [Suspect]
     Active Substance: TAFAMIDIS
     Dosage: 61 MG
     Dates: start: 202105
  2. TOPIRAMATE [Concomitant]
     Active Substance: TOPIRAMATE
     Dosage: 50 MG
  3. POTASSIUM [Concomitant]
     Active Substance: POTASSIUM
     Dosage: UNK
  4. TORSEMIDE [Concomitant]
     Active Substance: TORSEMIDE
     Dosage: UNK
  5. METOLAZONE [Concomitant]
     Active Substance: METOLAZONE
     Dosage: UNK, AS NEEDED
  6. ROPINIROLE EG [Concomitant]
     Dosage: UNK
  7. OXYCODONE [Concomitant]
     Active Substance: OXYCODONE
     Dosage: UNK
  8. CYMBALTA [Concomitant]
     Active Substance: DULOXETINE HYDROCHLORIDE
     Dosage: 60 MG
  9. FENTANYL [Concomitant]
     Active Substance: FENTANYL
     Dosage: 25 MG (PATCHES)
  10. UBRELVY [Concomitant]
     Active Substance: UBROGEPANT
     Dosage: 100 MG, AS NEEDED
  11. ALBUTEROL SULFATE [Concomitant]
     Active Substance: ALBUTEROL SULFATE
     Dosage: 90 MG, AS NEEDED
  12. DULERA [Concomitant]
     Active Substance: FORMOTEROL FUMARATE DIHYDRATE\MOMETASONE FUROATE
     Dosage: UNK, AS NEEDED
  13. METOPROLOL [Concomitant]
     Active Substance: METOPROLOL
     Dosage: 25 MG
  14. NEUPRO [Concomitant]
     Active Substance: ROTIGOTINE
     Dosage: 6 MG
  15. XANAX [Concomitant]
     Active Substance: ALPRAZOLAM
     Dosage: UNK
  16. VISTARIL (HYDROXYZINE HYDROCHLORIDE) [Concomitant]
     Active Substance: HYDROXYZINE HYDROCHLORIDE
     Dosage: UNK

REACTIONS (2)
  - Skin disorder [Unknown]
  - Chest pain [Recovered/Resolved]
